FAERS Safety Report 9062203 (Version 1)
Quarter: 2013Q1

REPORT INFORMATION
  Report Type: Spontaneous
  Country: GB (occurrence: GB)
  Receive Date: 20130127
  Receipt Date: 20130127
  Transmission Date: 20140127
  Serious: Yes (Other)
  Sender: FDA-Public Use
  Company Number: GB-TEVA-381654ISR

PATIENT
  Age: 46 Year
  Sex: Female
  Weight: 54.42 kg

DRUGS (5)
  1. TAMOXIFEN [Suspect]
     Indication: BREAST CANCER
     Route: 048
     Dates: start: 20081215
  2. AMITRIPTYLINE [Concomitant]
  3. COD LIVER OIL [Concomitant]
  4. GLUCOSAMINE WITH CHONDROITIN [Concomitant]
  5. VITAMIN SUPPLEMENT [Concomitant]

REACTIONS (4)
  - Hot flush [Not Recovered/Not Resolved]
  - Paraesthesia [Not Recovered/Not Resolved]
  - Myalgia [Not Recovered/Not Resolved]
  - Arthralgia [Not Recovered/Not Resolved]
